FAERS Safety Report 12842947 (Version 1)
Quarter: 2016Q4

REPORT INFORMATION
  Report Type: Other
  Country: IT (occurrence: IT)
  Receive Date: 20161013
  Receipt Date: 20161013
  Transmission Date: 20170207
  Serious: Yes (Hospitalization)
  Sender: FDA-Public Use
  Company Number: IT-APOTEX-2016AP012845

PATIENT
  Age: 81 Year
  Sex: Female

DRUGS (4)
  1. DELTACORTENE [Concomitant]
     Active Substance: PREDNISONE
     Indication: MIXED CONNECTIVE TISSUE DISEASE
     Dosage: 1 DF, UNK
     Route: 065
  2. TICLOPIDINE [Concomitant]
     Active Substance: TICLOPIDINE
     Indication: PRODUCT USED FOR UNKNOWN INDICATION
     Dosage: UNK
     Route: 065
  3. CLARITROMICINA DOC GENERICI [Suspect]
     Active Substance: CLARITHROMYCIN
     Indication: BRONCHITIS
     Dosage: DAILY
     Route: 048
     Dates: start: 20160531, end: 20160605
  4. FOLINA                             /00024201/ [Concomitant]
     Active Substance: FOLIC ACID
     Indication: PRODUCT USED FOR UNKNOWN INDICATION
     Dosage: UNK
     Route: 065

REACTIONS (2)
  - Pruritus [Recovered/Resolved]
  - Rash maculo-papular [Recovered/Resolved]

NARRATIVE: CASE EVENT DATE: 20160601
